FAERS Safety Report 6128200-3 (Version None)
Quarter: 2009Q1

REPORT INFORMATION
  Report Type: 
  Country: None (occurrence: None)
  Receive Date: 20090323
  Receipt Date: 20090318
  Transmission Date: 20090719
  Serious: Yes (Life-Threatening, Other)
  Sender: FDA-Public Use
  Company Number: BE-ASTRAZENECA-2009AC00817

PATIENT
  Age: 24 Year
  Sex: Female
  Weight: 62 kg

DRUGS (3)
  1. DIPRIVAN [Suspect]
     Indication: ANAESTHESIA
     Route: 042
     Dates: start: 20090310, end: 20090310
  2. DAFALGAN [Concomitant]
     Route: 048
     Dates: start: 20090310, end: 20090310
  3. SOLU-MEDROL [Concomitant]
     Dates: start: 20090310, end: 20090310

REACTIONS (2)
  - METABOLIC ACIDOSIS [None]
  - VASOPLEGIA SYNDROME [None]
